FAERS Safety Report 22069990 (Version 1)
Quarter: 2023Q1

REPORT INFORMATION
  Report Type: Spontaneous
  Country: US (occurrence: US)
  Receive Date: 20230307
  Receipt Date: 20230307
  Transmission Date: 20230417
  Serious: No
  Sender: FDA-Public Use
  Company Number: US-AMNEAL PHARMACEUTICALS-2022-AMRX-01015

PATIENT
  Sex: Female
  Weight: 45.351 kg

DRUGS (7)
  1. RYTARY [Suspect]
     Active Substance: CARBIDOPA\LEVODOPA
     Indication: Parkinson^s disease
     Dosage: UNK, HALF TABLET DOSE
     Route: 048
     Dates: start: 2019
  2. AMANTADINE [Concomitant]
     Active Substance: AMANTADINE
     Indication: Dyskinesia
     Dosage: 100 MILLIGRAM, 3 /DAY
     Route: 048
     Dates: start: 2019
  3. ROPINIROLE [Concomitant]
     Active Substance: ROPINIROLE
     Indication: Parkinson^s disease
     Dosage: 2 MILLIGRAM, 1 /DAY, IN MORNING
     Route: 048
     Dates: start: 202107
  4. GABAPENTIN [Concomitant]
     Active Substance: GABAPENTIN
     Indication: Back pain
     Dosage: 300 MILLIGRAM, 3 /DAY
     Route: 048
     Dates: start: 2015
  5. METOPROLOL [Concomitant]
     Active Substance: METOPROLOL
     Indication: Blood pressure abnormal
     Dosage: 25 MILLIGRAM HALF TABLET A DAY
     Route: 048
     Dates: start: 2021
  6. LISINOPRIL [Concomitant]
     Active Substance: LISINOPRIL
     Indication: Blood pressure abnormal
     Dosage: 40 MILLIGRAM, 1 /DAY
     Route: 048
     Dates: start: 2019
  7. DICLOFENAC [Concomitant]
     Active Substance: DICLOFENAC
     Indication: Back pain
     Dosage: 75 MILLIGRAM, 3 /DAY
     Route: 061
     Dates: start: 2015

REACTIONS (2)
  - Gait inability [Not Recovered/Not Resolved]
  - Wrong technique in product usage process [Unknown]
